FAERS Safety Report 4882366-1 (Version None)
Quarter: 2006Q1

REPORT INFORMATION
  Report Type: 
  Country: None (occurrence: None)
  Receive Date: 20060117
  Receipt Date: 20051221
  Transmission Date: 20060701
  Serious: Yes (Hospitalization)
  Sender: FDA-Public Use
  Company Number: FR-ROCHE-429410

PATIENT
  Age: 65 Year
  Sex: Female

DRUGS (4)
  1. CAPECITABINE [Suspect]
     Indication: BREAST CANCER METASTATIC
     Dosage: FROM DAY 1 TO DAY 14 EVERY 3 WEEKS.
     Route: 048
     Dates: start: 20050426, end: 20050729
  2. CAPECITABINE [Suspect]
     Route: 048
     Dates: start: 20050729
  3. VINORELBINE [Suspect]
     Indication: BREAST CANCER METASTATIC
     Dosage: ON DAY 1 AND 8 EVERY THREE WEEKS FOR CYCLE ONE.
     Route: 048
     Dates: start: 20050426
  4. VINORELBINE [Suspect]
     Dosage: ON DAY 1 AND 8 EVERY THREE WEEKS FOR FURTHER CYCLES.
     Route: 048
     Dates: start: 20050517

REACTIONS (1)
  - RENAL VEIN THROMBOSIS [None]
